FAERS Safety Report 11148329 (Version 1)
Quarter: 2015Q2

REPORT INFORMATION
  Report Type: Spontaneous
  Country: GB (occurrence: GB)
  Receive Date: 20150529
  Receipt Date: 20150529
  Transmission Date: 20150821
  Serious: Yes (Hospitalization)
  Sender: FDA-Public Use
  Company Number: GB-TEVA-565632ACC

PATIENT
  Age: 66 Year
  Sex: Female
  Weight: 47 kg

DRUGS (8)
  1. ASPIRIN. [Concomitant]
     Active Substance: ASPIRIN
  2. HALOPERIDOL. [Suspect]
     Active Substance: HALOPERIDOL
     Indication: AGITATION
     Dosage: 5 MILLIGRAM DAILY;
     Route: 048
     Dates: end: 20150515
  3. LANSOPRAZOLE. [Concomitant]
     Active Substance: LANSOPRAZOLE
  4. ONDANSETRON [Concomitant]
     Active Substance: ONDANSETRON
     Dosage: AS NEEDED
  5. ERTAPENEM [Concomitant]
     Active Substance: ERTAPENEM
  6. MORPHINE [Concomitant]
     Active Substance: MORPHINE
     Route: 048
  7. DOCUSATE [Concomitant]
     Active Substance: DOCUSATE
  8. CYCLIZINE HYDROCHLORIDE [Concomitant]
     Active Substance: CYCLIZINE HYDROCHLORIDE

REACTIONS (1)
  - Bradycardia [Recovered/Resolved]

NARRATIVE: CASE EVENT DATE: 20150514
